FAERS Safety Report 8520363-5 (Version None)
Quarter: 2012Q3

REPORT INFORMATION
  Report Type: 
  Country: None (occurrence: None)
  Receive Date: 20120712
  Receipt Date: 20120712
  Transmission Date: 20120928
  Serious: Yes (Other)
  Sender: FDA-Public Use
  Company Number: None

PATIENT
  Age: 65 Year
  Sex: Female
  Weight: 82.5547 kg

DRUGS (1)
  1. BENAZEPRIL HYDROCHLORIDE AND HYDROCHLOROTHIAZIDE [Suspect]
     Indication: HYPERTENSION
     Dosage: 1 EVERY DAY
     Dates: start: 20120613, end: 20120616

REACTIONS (6)
  - EYE OEDEMA [None]
  - NAUSEA [None]
  - PRODUCT FORMULATION ISSUE [None]
  - CONTRAST MEDIA ALLERGY [None]
  - SWELLING [None]
  - URTICARIA [None]
